FAERS Safety Report 7785771-9 (Version None)
Quarter: 2011Q3

REPORT INFORMATION
  Report Type: 
  Country: None (occurrence: None)
  Receive Date: 20110929
  Receipt Date: 20110926
  Transmission Date: 20111222
  Serious: Yes (Hospitalization)
  Sender: FDA-Public Use
  Company Number: ES-BRISTOL-MYERS SQUIBB COMPANY-16094872

PATIENT
  Age: 34 Year
  Sex: Male

DRUGS (4)
  1. IBUPROFEN [Suspect]
     Indication: PAIN
     Dosage: 1 TABS
     Route: 048
     Dates: start: 20110616, end: 20110616
  2. ENANTYUM [Suspect]
     Indication: VIRAL INFECTION
  3. ACETAMINOPHEN [Suspect]
     Indication: VIRAL INFECTION
  4. TRIAMCINOLONE ACETONIDE [Suspect]
     Indication: SCAR
     Route: 051
     Dates: start: 20110616, end: 20110616

REACTIONS (2)
  - VIRAL INFECTION [None]
  - RHABDOMYOLYSIS [None]
